FAERS Safety Report 5537004-1 (Version None)
Quarter: 2007Q4

REPORT INFORMATION
  Report Type: 
  Country: None (occurrence: None)
  Receive Date: 20071207
  Receipt Date: 20071128
  Transmission Date: 20080405
  Serious: Yes (Hospitalization)
  Sender: FDA-Public Use
  Company Number: US-JNJFOC-20071110616

PATIENT
  Sex: Female
  Weight: 83.92 kg

DRUGS (6)
  1. FENTANYL TRANSDERMAL SYSTEM [Suspect]
     Route: 062
  2. FENTANYL TRANSDERMAL SYSTEM [Suspect]
     Indication: BACK PAIN
     Route: 062
  3. DURAGESIC-100 [Suspect]
     Indication: BACK PAIN
     Route: 062
  4. FENTANYL [Suspect]
     Indication: BACK PAIN
     Route: 062
  5. XANAX [Concomitant]
     Indication: DEPRESSION
     Route: 048
  6. SKELAXIN [Concomitant]
     Indication: DRUG USE FOR UNKNOWN INDICATION
     Route: 048

REACTIONS (5)
  - ENDOSCOPIC ULTRASOUND ABNORMAL [None]
  - INSOMNIA [None]
  - ROTATOR CUFF REPAIR [None]
  - ULCER [None]
  - WRONG TECHNIQUE IN DRUG USAGE PROCESS [None]
